FAERS Safety Report 20320516 (Version 1)
Quarter: 2022Q1

REPORT INFORMATION
  Report Type: Spontaneous
  Country: US (occurrence: US)
  Receive Date: 20220111
  Receipt Date: 20220111
  Transmission Date: 20220423
  Serious: No
  Sender: FDA-Public Use
  Company Number: US-GLENMARK PHARMACEUTICALS-2021GMK068766

PATIENT

DRUGS (6)
  1. BETAMETHASONE DIPROPIONATE\CLOTRIMAZOLE [Suspect]
     Active Substance: BETAMETHASONE DIPROPIONATE\CLOTRIMAZOLE
     Indication: Fungal skin infection
     Dosage: UNK, BID
     Route: 061
     Dates: start: 20210715, end: 20210729
  2. AQUAPHOR [MINERAL WAX;PARAFFIN, LIQUID;PETROLATUM;WOOL ALCOHOLS] [Concomitant]
     Indication: Pruritus
     Dosage: UNK
     Route: 065
  3. LISINOPRIL [Concomitant]
     Active Substance: LISINOPRIL
     Indication: Hypertension
     Dosage: 40 MILLIGRAM, QD
     Route: 065
  4. INSULIN NOS [Concomitant]
     Active Substance: INSULIN NOS
     Indication: Product used for unknown indication
     Dosage: UNK
     Route: 050
  5. ATENOLOL [Concomitant]
     Active Substance: ATENOLOL
     Indication: Palpitations
     Dosage: 25 MILLIGRAM, QD
     Route: 065
  6. FLOMAX [Concomitant]
     Active Substance: TAMSULOSIN HYDROCHLORIDE
     Indication: Product used for unknown indication
     Dosage: UNK
     Route: 065

REACTIONS (1)
  - Product use issue [Unknown]

NARRATIVE: CASE EVENT DATE: 20210715
